FAERS Safety Report 6712022-6 (Version None)
Quarter: 2010Q2

REPORT INFORMATION
  Report Type: 
  Country: None (occurrence: None)
  Receive Date: 20100505
  Receipt Date: 20100423
  Transmission Date: 20101027
  Serious: Yes (Other)
  Sender: FDA-Public Use
  Company Number: JP-PFIZER INC-2010055361

PATIENT
  Age: 47 Year
  Sex: Female

DRUGS (1)
  1. CABERGOLINE [Suspect]
     Route: 048

REACTIONS (1)
  - OESTRADIOL INCREASED [None]
